FAERS Safety Report 9184351 (Version 1)
Quarter: 2013Q1

REPORT INFORMATION
  Report Type: Spontaneous
  Country: US (occurrence: US)
  Receive Date: 20130322
  Receipt Date: 20130322
  Transmission Date: 20140127
  Serious: Yes (Other)
  Sender: FDA-Public Use
  Company Number: US-JNJFOC-20130309550

PATIENT
  Age: 42 Year
  Sex: Female

DRUGS (2)
  1. NICOTINE POLACRILEX [Suspect]
     Indication: SMOKING CESSATION THERAPY
     Route: 065
     Dates: start: 20130312
  2. NICOTINE POLACRILEX [Suspect]
     Indication: SMOKING CESSATION THERAPY
     Route: 065

REACTIONS (3)
  - Nicotine dependence [Not Recovered/Not Resolved]
  - Intentional drug misuse [Unknown]
  - Drug ineffective [Unknown]
